FAERS Safety Report 23977786 (Version 1)
Quarter: 2024Q2

REPORT INFORMATION
  Report Type: Spontaneous
  Country: US (occurrence: US)
  Receive Date: 20240614
  Receipt Date: 20240614
  Transmission Date: 20240716
  Serious: Yes (Other)
  Sender: FDA-Public Use
  Company Number: US-TEVA-VS-3208128

PATIENT
  Age: 53 Year
  Sex: Female

DRUGS (1)
  1. PROPRANOLOL HYDROCHLORIDE [Suspect]
     Active Substance: PROPRANOLOL HYDROCHLORIDE
     Indication: Hypertension
     Route: 065
     Dates: start: 2023, end: 20240606

REACTIONS (7)
  - Swollen tongue [Recovering/Resolving]
  - Pruritus [Recovering/Resolving]
  - Therapeutic response unexpected [Unknown]
  - Anxiety [Unknown]
  - Urticaria [Recovering/Resolving]
  - Rash [Recovering/Resolving]
  - Food allergy [Unknown]

NARRATIVE: CASE EVENT DATE: 20240528
